FAERS Safety Report 16388696 (Version 1)
Quarter: 2019Q2

REPORT INFORMATION
  Report Type: Spontaneous
  Country: FR (occurrence: FR)
  Receive Date: 20190604
  Receipt Date: 20190604
  Transmission Date: 20190711
  Serious: Yes (Life-Threatening, Hospitalization, Other)
  Sender: FDA-Public Use
  Company Number: FR-PFIZER INC-2019235887

PATIENT
  Age: 49 Year
  Sex: Male
  Weight: 93 kg

DRUGS (14)
  1. INIPOMP [Suspect]
     Active Substance: PANTOPRAZOLE SODIUM
     Indication: GASTRITIS
     Dosage: UNK
     Route: 048
     Dates: end: 20161013
  2. PANTOPRAZOLE [Suspect]
     Active Substance: PANTOPRAZOLE
     Indication: GASTRITIS
     Dosage: UNK
     Route: 048
     Dates: end: 20161013
  3. HALDOL [Suspect]
     Active Substance: HALOPERIDOL
     Dosage: UNK
     Dates: start: 20161007, end: 20161011
  4. INIPOMP [Suspect]
     Active Substance: PANTOPRAZOLE SODIUM
     Dosage: UNK
     Route: 048
  5. CEFTAZIDIME. [Suspect]
     Active Substance: CEFTAZIDIME
     Indication: DEVICE RELATED INFECTION
     Dosage: UNK
     Dates: start: 20161010, end: 20161012
  6. FORTUM [CEFTAZIDIME] [Suspect]
     Active Substance: CEFTAZIDIME
     Dosage: UNK
     Dates: start: 20161010, end: 20161012
  7. PIPERACILLIN/TAZOBACTAM [Suspect]
     Active Substance: PIPERACILLIN SODIUM\TAZOBACTAM SODIUM
     Dosage: UNK
     Dates: start: 20161010, end: 20161011
  8. VANCOMYCIN HCL [Suspect]
     Active Substance: VANCOMYCIN HYDROCHLORIDE
     Dosage: UNK
  9. AZACTAM [Suspect]
     Active Substance: AZTREONAM
     Dosage: UNK
     Dates: start: 20161012, end: 20161017
  10. CRESTOR [Suspect]
     Active Substance: ROSUVASTATIN CALCIUM
     Indication: DYSLIPIDAEMIA
     Dosage: 20 MILLIGRAM
     Route: 048
     Dates: end: 20161012
  11. GELOFUSIN [Suspect]
     Active Substance: GELATIN\POTASSIUM CHLORIDE\SODIUM CHLORIDE
     Dosage: UNK
     Route: 041
     Dates: start: 20161010, end: 20161012
  12. TRANXENE [Suspect]
     Active Substance: CLORAZEPATE DIPOTASSIUM
     Dosage: UNK
     Dates: start: 20161008, end: 20161011
  13. AMIKACIN. [Suspect]
     Active Substance: AMIKACIN
     Dosage: UNK
     Dates: start: 20161010, end: 20161012
  14. MIDAZOLAM [Suspect]
     Active Substance: MIDAZOLAM HYDROCHLORIDE
     Dosage: UNK
     Dates: start: 20161011, end: 20161013

REACTIONS (6)
  - Rash generalised [Recovered/Resolved]
  - Circulatory collapse [Recovered/Resolved]
  - Acute kidney injury [Unknown]
  - Eosinophilia [Recovered/Resolved]
  - Drug reaction with eosinophilia and systemic symptoms [Recovered/Resolved]
  - Shock [Recovered/Resolved]

NARRATIVE: CASE EVENT DATE: 20161012
